FAERS Safety Report 9472904 (Version 1)
Quarter: 2013Q3

REPORT INFORMATION
  Report Type: Spontaneous
  Country: US (occurrence: US)
  Receive Date: 20130823
  Receipt Date: 20130823
  Transmission Date: 20140515
  Serious: No
  Sender: FDA-Public Use
  Company Number: US-BRISTOL-MYERS SQUIBB COMPANY-17213885

PATIENT
  Age: 59 Year
  Sex: Male
  Weight: 92.97 kg

DRUGS (3)
  1. SPRYCEL [Suspect]
     Indication: CHRONIC MYELOID LEUKAEMIA
     Dosage: 1 DF: 2 TABLETS, DOSAGE STRENGTH: 70MG
     Route: 048
     Dates: start: 20120825
  2. AMBIEN [Concomitant]
  3. PATANOL [Concomitant]
     Dosage: SOLUTION

REACTIONS (1)
  - Vision blurred [Unknown]
